FAERS Safety Report 5336919-7 (Version None)
Quarter: 2007Q2

REPORT INFORMATION
  Report Type: 
  Country: None (occurrence: None)
  Receive Date: 20070315
  Receipt Date: 20060622
  Transmission Date: 20071010
  Serious: Yes (Hospitalization)
  Sender: FDA-Public Use
  Company Number: PHEH2006US06054

PATIENT
  Age: 68 Year
  Sex: Female

DRUGS (4)
  1. TRILEPTAL [Suspect]
     Indication: CONVULSION
     Dosage: 600 MG, BID, ORAL
     Route: 048
     Dates: start: 20050405
  2. NEXIUM [Concomitant]
  3. CADUET (AMLODIPINE BESILATE, ATORVASTATIN CALCIUM) [Concomitant]
  4. SYNTHROID [Concomitant]

REACTIONS (2)
  - DIZZINESS [None]
  - HYPONATRAEMIA [None]
